FAERS Safety Report 4502530-0 (Version None)
Quarter: 2004Q4

REPORT INFORMATION
  Report Type: 
  Country: None (occurrence: None)
  Receive Date: 20041112
  Receipt Date: 20041027
  Transmission Date: 20050328
  Serious: Yes (Other)
  Sender: FDA-Public Use
  Company Number: 2004-UK-00894UK

PATIENT
  Age: 63 Year
  Sex: Female

DRUGS (3)
  1. MICARDIS HCT [Suspect]
     Indication: ESSENTIAL HYPERTENSION
     Dosage: 40-80 MG PO
     Route: 048
     Dates: start: 20031118, end: 20040715
  2. BISOPROLOL FUMARATE [Suspect]
     Indication: ARRHYTHMIA
     Dosage: 2.5 MG PO
     Route: 048
     Dates: start: 20040406, end: 20040715
  3. CARDURA [Concomitant]

REACTIONS (2)
  - PIGMENTATION DISORDER [None]
  - RASH [None]
